FAERS Safety Report 4556948-0 (Version None)
Quarter: 2005Q1

REPORT INFORMATION
  Report Type: 
  Country: None (occurrence: None)
  Receive Date: 20050118
  Receipt Date: 20050110
  Transmission Date: 20050727
  Serious: Yes (Hospitalization, Other)
  Sender: FDA-Public Use
  Company Number: 2004112033

PATIENT
  Age: 69 Year
  Sex: Male

DRUGS (5)
  1. CITALOR            (ATORVASTATIN) [Suspect]
     Indication: HYPERCHOLESTEROLAEMIA
     Dosage: 10 MG (10 MG, 1 IN 1 D), ORAL
     Route: 048
     Dates: start: 20040101
  2. ISOSORBIDE MONONITRATE [Concomitant]
  3. FUROSEMIDE          (FUROSEMIDE) [Concomitant]
  4. METOPROLOL SUCCINATE [Concomitant]
  5. ISOSORBIDE DINITRATE [Concomitant]

REACTIONS (4)
  - CHEST PAIN [None]
  - DIFFICULTY IN WALKING [None]
  - DISCOMFORT [None]
  - MYOCARDIAL INFARCTION [None]
